FAERS Safety Report 24038860 (Version 1)
Quarter: 2024Q3

REPORT INFORMATION
  Report Type: Spontaneous
  Country: US (occurrence: US)
  Receive Date: 20240702
  Receipt Date: 20240702
  Transmission Date: 20241016
  Serious: No
  Sender: APOTEX
  Company Number: US-APOTEX-2024AP007614

PATIENT
  Age: 24 Year
  Sex: Female

DRUGS (1)
  1. IPRATROPIUM [Suspect]
     Active Substance: IPRATROPIUM
     Indication: Asthma
     Dosage: UNK
     Route: 065

REACTIONS (2)
  - Asthma [Recovered/Resolved]
  - Bronchospasm paradoxical [Unknown]
